FAERS Safety Report 9170082 (Version 1)
Quarter: 2013Q1

REPORT INFORMATION
  Report Type: Spontaneous
  Country: US (occurrence: None)
  Receive Date: 20130314
  Receipt Date: 20130314
  Transmission Date: 20140127
  Serious: Yes (Hospitalization, Other)
  Sender: FDA-Public Use
  Company Number: None

PATIENT
  Sex: Male
  Weight: 92 kg

DRUGS (21)
  1. ITRACONAZOLE [Suspect]
     Indication: IATROGENIC INJURY
     Route: 048
     Dates: start: 20121206, end: 20130312
  2. ITRACONAZOLE [Suspect]
     Indication: MENINGITIS FUNGAL
     Route: 048
     Dates: start: 20121206, end: 20130312
  3. VORICONAZOLE [Suspect]
     Indication: IATROGENIC INJURY
     Dosage: 350 MG TWICE DAILY PO
     Route: 048
     Dates: start: 20120928, end: 20121023
  4. VORICONAZOLE [Suspect]
     Indication: MENINGITIS FUNGAL
     Dosage: 350 MG TWICE DAILY PO
     Route: 048
     Dates: start: 20120928, end: 20121023
  5. CARVEDIOLOL [Concomitant]
  6. GABAPENTIN [Concomitant]
  7. HYDRALAZINE [Concomitant]
  8. LISINOPRIL [Concomitant]
  9. OXYCODONE [Concomitant]
  10. MIRALAX [Concomitant]
  11. PROMETHAZINE [Concomitant]
  12. DILITAZEM [Concomitant]
  13. FUROSEMIDE [Concomitant]
  14. GABAPENTIN [Concomitant]
  15. GLIMEPIRIDE [Concomitant]
  16. METOPROLOL [Concomitant]
  17. LISINOPRIL [Concomitant]
  18. OMEPRAZOLE [Concomitant]
  19. HYDROCODONE/ACETAMINOPHEN [Concomitant]
  20. CITALOPRAM [Concomitant]
  21. ASPIRIN [Concomitant]

REACTIONS (1)
  - Cholestasis [None]
